FAERS Safety Report 18858303 (Version 1)
Quarter: 2021Q1

REPORT INFORMATION
  Report Type: Spontaneous
  Country: US (occurrence: US)
  Receive Date: 20210208
  Receipt Date: 20210208
  Transmission Date: 20210420
  Serious: No
  Sender: FDA-Public Use
  Company Number: US-BAYER-2021-057679

PATIENT

DRUGS (1)
  1. ALEVE [Suspect]
     Active Substance: NAPROXEN SODIUM
     Indication: PAIN
     Dosage: I TYPICALLY TAKE 2?4 DEPENDING ON MY PAIN BUT HAVE TAKEN AS MANY AS 8 WITHIN 2 HOURS.UNK

REACTIONS (1)
  - Extra dose administered [Unknown]
